FAERS Safety Report 24788334 (Version 1)
Quarter: 2024Q4

REPORT INFORMATION
  Report Type: Spontaneous
  Country: SK (occurrence: SK)
  Receive Date: 20241230
  Receipt Date: 20241230
  Transmission Date: 20250115
  Serious: Yes (Life-Threatening, Other)
  Sender: MSN LABORATORIES PRIVATE LIMITED
  Company Number: SK-MLMSERVICE-20241206-PI282554-00306-1

PATIENT

DRUGS (18)
  1. DARUNAVIR [Suspect]
     Active Substance: DARUNAVIR
     Indication: Acquired immunodeficiency syndrome
     Route: 065
  2. RITONAVIR [Suspect]
     Active Substance: RITONAVIR
     Indication: Acquired immunodeficiency syndrome
     Route: 065
  3. TACROLIMUS [Suspect]
     Active Substance: TACROLIMUS
     Indication: Immunosuppressant drug therapy
     Dosage: DAY 02
     Route: 048
     Dates: start: 20231204, end: 20231204
  4. TACROLIMUS [Suspect]
     Active Substance: TACROLIMUS
     Dosage: DAY 15 TO 30.
     Route: 048
     Dates: start: 20231219, end: 20240102
  5. TACROLIMUS [Suspect]
     Active Substance: TACROLIMUS
     Dosage: DAY 01
     Route: 048
     Dates: start: 20231205, end: 20231205
  6. TACROLIMUS [Suspect]
     Active Substance: TACROLIMUS
     Dosage: DAY 09
     Route: 048
     Dates: start: 20231213, end: 20231213
  7. TACROLIMUS [Suspect]
     Active Substance: TACROLIMUS
     Dosage: DAY 11
     Route: 048
     Dates: start: 20231215
  8. TACROLIMUS [Suspect]
     Active Substance: TACROLIMUS
     Dosage: DAY 06, 07
     Route: 048
     Dates: start: 20231210, end: 20231211
  9. MYCOPHENOLIC ACID [Concomitant]
     Active Substance: MYCOPHENOLIC ACID
     Route: 048
     Dates: start: 202312
  10. MYCOPHENOLIC ACID [Concomitant]
     Active Substance: MYCOPHENOLIC ACID
     Route: 048
  11. BASILIXIMAB [Concomitant]
     Active Substance: BASILIXIMAB
     Dosage: TWO DOSES ON DAY 0 AND 4.
     Route: 042
     Dates: start: 20231206, end: 20231206
  12. BASILIXIMAB [Concomitant]
     Active Substance: BASILIXIMAB
     Dosage: TWO DOSES ON DAY 0 AND 4
     Route: 042
     Dates: start: 20231210, end: 20231210
  13. METHYLPREDNISOLONE [Concomitant]
     Active Substance: METHYLPREDNISOLONE
     Route: 042
  14. PREDNISONE [Concomitant]
     Active Substance: PREDNISONE
     Route: 048
  15. SULFAMETHOXAZOLE\TRIMETHOPRIM [Concomitant]
     Active Substance: SULFAMETHOXAZOLE\TRIMETHOPRIM
     Indication: Antifungal prophylaxis
     Route: 065
  16. SULFAMETHOXAZOLE\TRIMETHOPRIM [Concomitant]
     Active Substance: SULFAMETHOXAZOLE\TRIMETHOPRIM
     Indication: Toxoplasmosis prophylaxis
  17. SULFAMETHOXAZOLE\TRIMETHOPRIM [Concomitant]
     Active Substance: SULFAMETHOXAZOLE\TRIMETHOPRIM
  18. DOLUTEGRAVIR [Concomitant]
     Active Substance: DOLUTEGRAVIR
     Indication: Acquired immunodeficiency syndrome
     Route: 065

REACTIONS (5)
  - Acute kidney injury [Recovering/Resolving]
  - Transplant rejection [Recovering/Resolving]
  - Toxicity to various agents [Recovering/Resolving]
  - Lymphocele [Recovering/Resolving]
  - Drug interaction [Recovering/Resolving]

NARRATIVE: CASE EVENT DATE: 20231201
